FAERS Safety Report 20988539 (Version 1)
Quarter: 2022Q2

REPORT INFORMATION
  Report Type: Spontaneous
  Country: US (occurrence: US)
  Receive Date: 20220621
  Receipt Date: 20220621
  Transmission Date: 20220721
  Serious: Yes (Hospitalization)
  Sender: FDA-Public Use
  Company Number: US-JUBILANT CADISTA PHARMACEUTICALS-2022JUB00168

PATIENT
  Age: 18 Year
  Sex: Male

DRUGS (6)
  1. MEMANTINE HYDROCHLORIDE [Suspect]
     Active Substance: MEMANTINE HYDROCHLORIDE
     Indication: Prophylaxis
     Dosage: 5 MG, 1X/DAY
     Route: 065
  2. RADIATION THERAPY [Concomitant]
     Active Substance: RADIATION THERAPY
     Dosage: 20 GY IN FIVE FRACTIONS
     Route: 065
  3. DEXAMETHASONE [Concomitant]
     Active Substance: DEXAMETHASONE
     Dosage: 2 MG, 2X/DAY
     Route: 065
  4. DEXAMETHASONE [Concomitant]
     Active Substance: DEXAMETHASONE
     Dosage: 4 MG, 2X/DAY
     Route: 042
  5. VALPROATE [Concomitant]
     Active Substance: VALPROIC ACID
     Route: 065
  6. VALPROATE [Concomitant]
     Active Substance: VALPROIC ACID
     Dosage: UNK UNK, 4X/DAY
     Route: 042

REACTIONS (2)
  - Confusional state [Recovered/Resolved]
  - Ataxia [Recovered/Resolved]
